FAERS Safety Report 4312225-4 (Version None)
Quarter: 2004Q1

REPORT INFORMATION
  Report Type: 
  Country: None (occurrence: None)
  Receive Date: 20040305
  Receipt Date: 20040303
  Transmission Date: 20041129
  Serious: Yes (Hospitalization)
  Sender: FDA-Public Use
  Company Number: WAES 0403DEU00022

PATIENT
  Age: 82 Year
  Sex: Female

DRUGS (11)
  1. ACYCLOVIR [Concomitant]
     Indication: HERPES ZOSTER
     Route: 048
     Dates: start: 20031001, end: 20031108
  2. BISOPROLOL [Concomitant]
     Indication: HYPERTENSION
     Route: 048
     Dates: end: 20031108
  3. DIPYRONE [Suspect]
     Indication: PAIN
     Route: 048
     Dates: start: 20031001, end: 20031108
  4. GLIMEPIRIDE [Suspect]
     Indication: DIABETES MELLITUS
     Route: 048
     Dates: end: 20031108
  5. HYDROXYZINE HYDROCHLORIDE [Concomitant]
     Indication: AGITATION
     Route: 048
     Dates: end: 20031108
  6. PIRETANIDE [Suspect]
     Indication: HYPERTENSION
     Route: 048
     Dates: end: 20031108
  7. PROCAINE HYDROCHLORIDE [Concomitant]
     Indication: PAIN
     Route: 041
     Dates: end: 20031104
  8. QUINAPRIL HYDROCHLORIDE [Suspect]
     Indication: HYPERTENSION
     Route: 048
     Dates: end: 20031108
  9. VIOXX [Suspect]
     Indication: PAIN
     Route: 048
     Dates: start: 20030801, end: 20031108
  10. THIOCTIC ACID [Concomitant]
     Indication: POLYNEUROPATHY
     Route: 048
     Dates: end: 20031108
  11. TOLPERISONE HYDROCHLORIDE [Concomitant]
     Indication: PAIN
     Route: 048
     Dates: start: 20031001, end: 20031108

REACTIONS (8)
  - ABDOMINAL PAIN [None]
  - BLOOD POTASSIUM DECREASED [None]
  - DRUG INTERACTION [None]
  - HYPERTENSION [None]
  - HYPONATRAEMIA [None]
  - OEDEMA PERIPHERAL [None]
  - OESOPHAGEAL CANDIDIASIS [None]
  - VOMITING [None]
